FAERS Safety Report 7669861-7 (Version None)
Quarter: 2011Q3

REPORT INFORMATION
  Report Type: 
  Country: None (occurrence: None)
  Receive Date: 20110808
  Receipt Date: 20110808
  Transmission Date: 20111222
  Serious: Yes (Life-Threatening)
  Sender: FDA-Public Use
  Company Number: US-B.I. PHARMACEUTICALS,INC./RIDGEFIELD-2011-BP-17552BP

PATIENT
  Age: 51 Year
  Sex: Female
  Weight: 61.23 kg

DRUGS (2)
  1. PRADAXA [Suspect]
     Dosage: 300 MG
     Dates: start: 20110526, end: 20110712
  2. FLECAINIDE ACETATE [Concomitant]
     Dosage: 300 MG

REACTIONS (1)
  - URTICARIA [None]
